FAERS Safety Report 5868689-8 (Version None)
Quarter: 2008Q3

REPORT INFORMATION
  Report Type: 
  Country: None (occurrence: None)
  Receive Date: 20080903
  Receipt Date: 20080826
  Transmission Date: 20090109
  Serious: Yes (Disabling, Other)
  Sender: FDA-Public Use
  Company Number: PHEH2007US02869

PATIENT
  Sex: Male
  Weight: 87.982 kg

DRUGS (8)
  1. ZOMETA [Suspect]
     Indication: MULTIPLE MYELOMA
     Dosage: 4 MG IV MONTHLY
     Dates: start: 20020801, end: 20040722
  2. HYTRIN [Concomitant]
     Indication: PROSTATITIS
  3. PROSCAR [Concomitant]
     Indication: PROSTATITIS
  4. ADRENERGIC DRUGS [Concomitant]
  5. LIPITOR [Concomitant]
  6. ZOCOR [Concomitant]
  7. VITAMIN TAB [Concomitant]
  8. SAW PALMETTO [Concomitant]

REACTIONS (23)
  - ABDOMINAL HERNIA [None]
  - ANXIETY [None]
  - BETA 2 MICROGLOBULIN INCREASED [None]
  - BLOOD CREATINE PHOSPHOKINASE INCREASED [None]
  - BONE DISORDER [None]
  - BONE SCAN ABNORMAL [None]
  - CHEST PAIN [None]
  - COLONIC POLYP [None]
  - DECREASED INTEREST [None]
  - GENERAL PHYSICAL HEALTH DETERIORATION [None]
  - INTERVERTEBRAL DISC PROTRUSION [None]
  - JAW OPERATION [None]
  - MULTIPLE MYELOMA [None]
  - OSTEONECROSIS [None]
  - OSTEOPENIA [None]
  - PAIN [None]
  - PAROXYSMAL NOCTURNAL HAEMOGLOBINURIA [None]
  - PLASMA CELLS INCREASED [None]
  - PROSTATIC OBSTRUCTION [None]
  - PROSTATIC SPECIFIC ANTIGEN INCREASED [None]
  - PROSTATITIS [None]
  - PROSTATOMEGALY [None]
  - RESORPTION BONE INCREASED [None]
